FAERS Safety Report 21527405 (Version 2)
Quarter: 2023Q1

REPORT INFORMATION
  Report Type: Spontaneous
  Country: US (occurrence: US)
  Receive Date: 20221031
  Receipt Date: 20230104
  Transmission Date: 20230418
  Serious: Yes (Hospitalization, Other)
  Sender: FDA-Public Use
  Company Number: US-SA-SAC20221028001687

PATIENT
  Age: 56 Year
  Sex: Female

DRUGS (1)
  1. DUPIXENT [Suspect]
     Active Substance: DUPILUMAB
     Indication: Dermatitis atopic
     Dosage: 300 MG, QOW
     Route: 058
     Dates: start: 202205

REACTIONS (7)
  - Myocardial infarction [Recovering/Resolving]
  - Decreased appetite [Recovering/Resolving]
  - Blood pressure diastolic increased [Recovering/Resolving]
  - Weight decreased [Recovering/Resolving]
  - Rib fracture [Recovering/Resolving]
  - Dermatitis atopic [Recovering/Resolving]
  - Injection site pain [Recovering/Resolving]

NARRATIVE: CASE EVENT DATE: 20221201
